FAERS Safety Report 9329265 (Version 1)
Quarter: 2013Q2

REPORT INFORMATION
  Report Type: Spontaneous
  Country: BR (occurrence: BR)
  Receive Date: 20130604
  Receipt Date: 20130604
  Transmission Date: 20140414
  Serious: Yes (Other)
  Sender: FDA-Public Use
  Company Number: BR-009507513-1306BRA000637

PATIENT
  Age: 28 Year
  Sex: Female
  Weight: 70 kg

DRUGS (1)
  1. MERCILON [Suspect]
     Indication: CONTRACEPTION
     Dosage: 1 TABLET, QD
     Route: 048

REACTIONS (6)
  - Caesarean section [Unknown]
  - Labour complication [Unknown]
  - Dermal cyst [Unknown]
  - Cyst removal [Unknown]
  - Procedural pain [Recovered/Resolved]
  - Maternal exposure before pregnancy [Unknown]
